FAERS Safety Report 7806078-7 (Version None)
Quarter: 2011Q4

REPORT INFORMATION
  Report Type: 
  Country: None (occurrence: None)
  Receive Date: 20111011
  Receipt Date: 20111003
  Transmission Date: 20120403
  Serious: No
  Sender: FDA-Public Use
  Company Number: US-B.I. PHARMACEUTICALS,INC./RIDGEFIELD-2011-BP-21131BP

PATIENT
  Sex: Male

DRUGS (4)
  1. PRADAXA [Suspect]
     Dosage: 150 MG
     Route: 048
     Dates: start: 20110301
  2. LISINOPRIL [Concomitant]
  3. PRADAXA [Suspect]
     Indication: ATRIAL FIBRILLATION
     Dosage: 300 MG
     Route: 048
     Dates: start: 20110101, end: 20110301
  4. DIGOXIN [Concomitant]

REACTIONS (4)
  - ARTHRALGIA [None]
  - ERUCTATION [None]
  - CONTUSION [None]
  - PAIN IN EXTREMITY [None]
